FAERS Safety Report 18015894 (Version 7)
Quarter: 2022Q2

REPORT INFORMATION
  Report Type: Report from Study
  Country: US (occurrence: US)
  Receive Date: 20200713
  Receipt Date: 20220630
  Transmission Date: 20220721
  Serious: Yes (Other)
  Sender: FDA-Public Use
  Company Number: US-SHIRE-US202022294

PATIENT
  Age: 74 Year
  Sex: Female
  Weight: 100 kg

DRUGS (30)
  1. HUMAN IMMUNOGLOBULIN G [Suspect]
     Active Substance: HUMAN IMMUNOGLOBULIN G
     Indication: Immunodeficiency common variable
     Dosage: 40 GRAM, Q4WEEKS
     Route: 042
     Dates: start: 20181101
  2. LOSARTAN AND HYDROCHLOROTHIAZIDE [Concomitant]
     Active Substance: HYDROCHLOROTHIAZIDE\LOSARTAN POTASSIUM
  3. DILTIAZEM 12HR [Concomitant]
  4. ACETAMINOPHEN [Concomitant]
     Active Substance: ACETAMINOPHEN
  5. DIPHENHYDRAMINE [Concomitant]
     Active Substance: DIPHENHYDRAMINE
  6. SODIUM CHLORIDE [Concomitant]
     Active Substance: SODIUM CHLORIDE
  7. EPINEPHRINE [Concomitant]
     Active Substance: EPINEPHRINE
  8. ARMOUR THYROID [Concomitant]
     Active Substance: THYROID, PORCINE
  9. LACTOBACILLUS ACIDOPHILUS [Concomitant]
     Active Substance: LACTOBACILLUS ACIDOPHILUS
  10. VITAMIN D2 [Concomitant]
     Active Substance: ERGOCALCIFEROL
  11. PYRIDOXINE HYDROCHLORIDE [Concomitant]
     Active Substance: PYRIDOXINE HYDROCHLORIDE
  12. PROGESTERONE [Concomitant]
     Active Substance: PROGESTERONE
  13. HYDROCHLOROTHIAZIDE [Concomitant]
     Active Substance: HYDROCHLOROTHIAZIDE
  14. ASPIRIN [Concomitant]
     Active Substance: ASPIRIN
  15. SPIRONOLACTONE [Concomitant]
     Active Substance: SPIRONOLACTONE
  16. ROSUVASTATIN CALCIUM [Concomitant]
     Active Substance: ROSUVASTATIN CALCIUM
  17. FINASTERIDE [Concomitant]
     Active Substance: FINASTERIDE
  18. ALBUTEROL\IPRATROPIUM [Concomitant]
     Active Substance: ALBUTEROL\IPRATROPIUM
  19. ZYRTEC [Concomitant]
     Active Substance: CETIRIZINE HYDROCHLORIDE
  20. RANITIDINE [Concomitant]
     Active Substance: RANITIDINE
  21. PRASTERONE [Concomitant]
     Active Substance: PRASTERONE
  22. HERBALS\TURMERIC [Concomitant]
     Active Substance: HERBALS\TURMERIC
  23. KETOCONAZOLE [Concomitant]
     Active Substance: KETOCONAZOLE
  24. IODINE [Concomitant]
     Active Substance: IODINE
  25. BIOTIN [Concomitant]
     Active Substance: BIOTIN
  26. POTASSIUM CHLORIDE [Concomitant]
     Active Substance: POTASSIUM CHLORIDE
  27. TESTOSTERONE [Concomitant]
     Active Substance: TESTOSTERONE
  28. HYDROCHLOROTHIAZIDE [Concomitant]
     Active Substance: HYDROCHLOROTHIAZIDE
  29. CALCIUM MAGNESIUM ZINC VITAMIN D3 [Concomitant]
  30. VITAMIN D [Concomitant]
     Active Substance: VITAMIN D NOS

REACTIONS (15)
  - Epstein-Barr virus infection reactivation [Unknown]
  - Lyme disease [Unknown]
  - Dehydration [Unknown]
  - Haematocrit increased [Unknown]
  - Fibrin D dimer increased [Unknown]
  - Arthralgia [Unknown]
  - Hormone level abnormal [Unknown]
  - Fatigue [Unknown]
  - COVID-19 [Recovering/Resolving]
  - Bronchitis [Unknown]
  - Mole excision [Unknown]
  - Oral herpes [Unknown]
  - Post-acute COVID-19 syndrome [Unknown]
  - Product administration error [Unknown]
  - Inappropriate schedule of product administration [Unknown]

NARRATIVE: CASE EVENT DATE: 20220401
